FAERS Safety Report 7129495-X (Version None)
Quarter: 2010Q4

REPORT INFORMATION
  Report Type: 
  Country: None (occurrence: None)
  Receive Date: 20101116
  Receipt Date: 20101105
  Transmission Date: 20110411
  Serious: Yes (Hospitalization)
  Sender: FDA-Public Use
  Company Number: 019811

PATIENT
  Sex: Female
  Weight: 60 kg

DRUGS (3)
  1. VIMPAT [Suspect]
     Indication: EPILEPSY
     Dosage: (50 DF BID ORAL) (200 DF BID, UPTITRATING OF DOSE ORAL)
     Route: 048
     Dates: start: 20100923, end: 20100924
  2. VIMPAT [Suspect]
     Indication: EPILEPSY
     Dosage: (50 DF BID ORAL) (200 DF BID, UPTITRATING OF DOSE ORAL)
     Route: 048
     Dates: start: 20100901, end: 20100927
  3. LAMOTRIGINE [Concomitant]

REACTIONS (5)
  - CONFUSIONAL STATE [None]
  - CONVULSION [None]
  - DIPLOPIA [None]
  - DISTURBANCE IN ATTENTION [None]
  - HALLUCINATION [None]
